FAERS Safety Report 19447207 (Version 1)
Quarter: 2021Q2

REPORT INFORMATION
  Report Type: Spontaneous
  Country: CA (occurrence: CA)
  Receive Date: 20210621
  Receipt Date: 20210621
  Transmission Date: 20210717
  Serious: No
  Sender: FDA-Public Use
  Company Number: None

PATIENT
  Age: 88 Year
  Sex: Female

DRUGS (6)
  1. MVI [Concomitant]
     Active Substance: VITAMINS
  2. CALCIUM [Concomitant]
     Active Substance: CALCIUM
  3. GLUCOSAMINE/CONDROTIN [Concomitant]
  4. VIT D [Concomitant]
     Active Substance: VITAMIN D NOS
  5. PROLIA [Suspect]
     Active Substance: DENOSUMAB
     Indication: OSTEOPENIA
     Dates: start: 20201220, end: 20210616
  6. VIT B [Concomitant]
     Active Substance: VITAMIN B

REACTIONS (5)
  - Diarrhoea [None]
  - Back pain [None]
  - Pollakiuria [None]
  - Rash papular [None]
  - Rash erythematous [None]

NARRATIVE: CASE EVENT DATE: 20201220
